FAERS Safety Report 8302366-9 (Version None)
Quarter: 2012Q2

REPORT INFORMATION
  Report Type: 
  Country: None (occurrence: None)
  Receive Date: 20120418
  Receipt Date: 20120418
  Transmission Date: 20120825
  Serious: No
  Sender: FDA-Public Use
  Company Number: None

PATIENT
  Age: 48 Year
  Sex: Female

DRUGS (1)
  1. LEVOCETIRIZINE DIHYDROCHLORIDE [Suspect]
     Indication: MULTIPLE ALLERGIES
     Dosage: TAKE ONE-HALF (1/2) TO ONE TABLET DAILY AT BEDTIME

REACTIONS (2)
  - CHEST PAIN [None]
  - PRODUCT ODOUR ABNORMAL [None]
